FAERS Safety Report 21907899 (Version 1)
Quarter: 2023Q1

REPORT INFORMATION
  Report Type: Spontaneous
  Country: CH (occurrence: CH)
  Receive Date: 20230125
  Receipt Date: 20230125
  Transmission Date: 20230417
  Serious: Yes (Death)
  Sender: FDA-Public Use
  Company Number: CH-Blueprint Medicines Corporation-SP-CH-2023-000132

PATIENT

DRUGS (1)
  1. AVAPRITINIB [Suspect]
     Active Substance: AVAPRITINIB
     Indication: Brain neoplasm
     Route: 065

REACTIONS (2)
  - Death [Fatal]
  - Off label use [Unknown]
